FAERS Safety Report 9030305 (Version 1)
Quarter: 2013Q1

REPORT INFORMATION
  Report Type: Spontaneous
  Country: JP (occurrence: JP)
  Receive Date: 20130122
  Receipt Date: 20130122
  Transmission Date: 20140127
  Serious: Yes (Hospitalization, Other)
  Sender: FDA-Public Use
  Company Number: PHHY2013JP005335

PATIENT
  Age: 20 Month
  Sex: Female
  Weight: 9 kg

DRUGS (6)
  1. SENIRAN [Suspect]
     Route: 048
  2. LORAZEPAM [Suspect]
     Route: 048
  3. ALPRAZOLAM [Suspect]
     Route: 048
  4. LOXOPROFEN [Suspect]
  5. CLONAZEPAM [Suspect]
     Route: 048
  6. ETHYL LOFLAZEPATE [Suspect]
     Route: 048

REACTIONS (10)
  - Parkinsonism [Unknown]
  - Gait disturbance [Unknown]
  - Tremor [Unknown]
  - Somnolence [Unknown]
  - Agitation [Unknown]
  - Crying [Unknown]
  - Heart rate increased [Unknown]
  - Intentional overdose [Unknown]
  - Toxicity to various agents [None]
  - Body temperature decreased [None]
